FAERS Safety Report 11705649 (Version 5)
Quarter: 2017Q1

REPORT INFORMATION
  Report Type: Report from Study
  Country: FR (occurrence: FR)
  Receive Date: 20151106
  Receipt Date: 20170203
  Transmission Date: 20170428
  Serious: Yes (Death)
  Sender: FDA-Public Use
  Company Number: FR-PFIZER INC-2015361212

PATIENT
  Age: 73 Year
  Sex: Male

DRUGS (13)
  1. O2 /00150301/ [Concomitant]
     Active Substance: OXYGEN
     Indication: METASTASES TO LUNG
     Dosage: UNK
     Dates: start: 201502
  2. SUNITINIB MALATE. [Suspect]
     Active Substance: SUNITINIB MALATE
     Indication: METASTATIC RENAL CELL CARCINOMA
     Dosage: 50 MG, CYCLIC, 4 WEEKS ON, 2 WEEKS OFF
     Dates: start: 20150411, end: 201506
  3. SERETIDE [Concomitant]
     Active Substance: FLUTICASONE PROPIONATE\SALMETEROL XINAFOATE
     Indication: METASTASES TO LUNG
     Dosage: UNK
     Dates: start: 201502
  4. DEXERYL /01579901/ [Concomitant]
     Active Substance: GLYCERIN\MINERAL OIL\PARAFFIN
     Indication: PROPHYLAXIS
     Dosage: UNK
     Dates: start: 201504
  5. SOLUPRED /00016201/ [Concomitant]
     Active Substance: PREDNISOLONE
     Indication: METASTASES TO LUNG
     Dosage: 20 MG, UNK
     Dates: start: 201502
  6. XERIAL [Concomitant]
     Indication: PROPHYLAXIS
     Dosage: UNK
     Dates: start: 201504
  7. LASILIX /00032601/ [Concomitant]
     Active Substance: FUROSEMIDE
     Indication: PROPHYLAXIS
     Dosage: UNK
     Dates: start: 201505
  8. VENTOLINE /00139501/ [Concomitant]
     Active Substance: ALBUTEROL
     Indication: METASTASES TO LUNG
     Dosage: UNK
     Dates: start: 201502
  9. DERMOVAL /00008501/ [Concomitant]
     Active Substance: CLOBETASOL PROPIONATE
     Indication: PROPHYLAXIS
     Dosage: UNK
     Dates: start: 201504
  10. SPIRIVA [Concomitant]
     Active Substance: TIOTROPIUM BROMIDE MONOHYDRATE
     Indication: METASTASES TO LUNG
     Dosage: UNK
     Dates: start: 201502
  11. ESOMEPRAZOLE [Concomitant]
     Active Substance: ESOMEPRAZOLE
     Dosage: UNK
  12. CORDARONE [Concomitant]
     Active Substance: AMIODARONE HYDROCHLORIDE
     Indication: PROPHYLAXIS
     Dosage: UNK
     Dates: start: 201505
  13. SODIUM BICARBONATE. [Concomitant]
     Active Substance: SODIUM BICARBONATE
     Indication: PROPHYLAXIS
     Dosage: UNK
     Dates: start: 201504

REACTIONS (1)
  - Death [Fatal]

NARRATIVE: CASE EVENT DATE: 20150618
